FAERS Safety Report 8942455 (Version 1)
Quarter: 2012Q4

REPORT INFORMATION
  Report Type: 
  Country: IT (occurrence: IT)
  Receive Date: 20121204
  Receipt Date: 20121204
  Transmission Date: 20130627
  Serious: Yes (Hospitalization, Other)
  Sender: FDA-Public Use
  Company Number: IT-ELI_LILLY_AND_COMPANY-IT201210003720

PATIENT
  Age: 38 None
  Sex: Male
  Weight: 50 kg

DRUGS (7)
  1. HUMALOG LISPRO [Suspect]
     Indication: TYPE 1 DIABETES MELLITUS
     Dosage: 28 IU, UNK
     Route: 058
     Dates: start: 20100701, end: 20120918
  2. HUMALOG LISPRO [Suspect]
     Dosage: 10 IU, bid
     Dates: start: 20120922
  3. HUMALOG LISPRO [Suspect]
     Dosage: 8 IU, qd
     Dates: start: 20120922
  4. LANTUS [Concomitant]
     Indication: TYPE 1 DIABETES MELLITUS
     Dosage: 12 IU, UNK
     Route: 058
     Dates: start: 20070201, end: 20120918
  5. LANTUS [Concomitant]
     Dosage: 12 IU, each evening
     Dates: start: 20120922
  6. CARDIOASPIRIN [Concomitant]
     Dosage: 1 DF, unknown
     Route: 048
  7. ALCOHOL [Concomitant]

REACTIONS (7)
  - Hypoglycaemia [Recovered/Resolved]
  - Hyperglycaemia [Unknown]
  - Ketoacidosis [Unknown]
  - Ischaemic stroke [Unknown]
  - Blood glucose increased [Unknown]
  - Glycosuria [Unknown]
  - Glycosylated haemoglobin increased [Unknown]
